FAERS Safety Report 23673682 (Version 1)
Quarter: 2024Q1

REPORT INFORMATION
  Report Type: Spontaneous
  Country: US (occurrence: US)
  Receive Date: 20240326
  Receipt Date: 20240326
  Transmission Date: 20240410
  Serious: No
  Sender: FDA-Public Use
  Company Number: US-Accord-368194

PATIENT
  Sex: Female
  Weight: 57.15 kg

DRUGS (1)
  1. TACROLIMUS [Suspect]
     Active Substance: TACROLIMUS
     Indication: Dry skin
     Dosage: 1% TOPICAL OINTMENT ON THE FACE
     Dates: start: 20230706

REACTIONS (2)
  - Swelling face [Unknown]
  - Skin burning sensation [Unknown]
